FAERS Safety Report 6267080-2 (Version None)
Quarter: 2009Q3

REPORT INFORMATION
  Report Type: 
  Country: None (occurrence: None)
  Receive Date: 20090714
  Receipt Date: 20090708
  Transmission Date: 20100115
  Serious: Yes (Death, Hospitalization)
  Sender: FDA-Public Use
  Company Number: DE-BAYER-200925213GPV

PATIENT
  Age: 66 Year
  Sex: Male

DRUGS (10)
  1. SORAFENIB [Suspect]
     Indication: MALIGNANT MELANOMA
     Dosage: UNIT DOSE: 400 MG
  2. DENDRITIC CELL VAC [Concomitant]
     Indication: MALIGNANT MELANOMA
  3. ASPIRIN [Concomitant]
     Indication: DRUG USE FOR UNKNOWN INDICATION
  4. ALNA [Concomitant]
     Indication: DRUG USE FOR UNKNOWN INDICATION
  5. RAMIPRIL [Concomitant]
     Indication: DRUG USE FOR UNKNOWN INDICATION
  6. HYDROCHLOROTHIAZIDE [Concomitant]
     Indication: DRUG USE FOR UNKNOWN INDICATION
  7. L-THYROXIN [Concomitant]
     Indication: DRUG USE FOR UNKNOWN INDICATION
  8. AMLODIPINE [Concomitant]
     Indication: DRUG USE FOR UNKNOWN INDICATION
  9. MOBIC [Concomitant]
     Indication: DRUG USE FOR UNKNOWN INDICATION
  10. SIMVAHEXAL [Concomitant]
     Indication: DRUG USE FOR UNKNOWN INDICATION

REACTIONS (2)
  - LARGE INTESTINAL ULCER [None]
  - LARGE INTESTINE PERFORATION [None]
